FAERS Safety Report 8090322-8 (Version None)
Quarter: 2012Q1

REPORT INFORMATION
  Report Type: 
  Country: None (occurrence: None)
  Receive Date: 20120129
  Receipt Date: 20111111
  Transmission Date: 20120608
  Serious: No
  Sender: FDA-Public Use
  Company Number: US-ABBOTT-11P-163-0873690-00

PATIENT
  Sex: Female

DRUGS (6)
  1. HUMIRA [Suspect]
     Indication: PSORIASIS
     Dosage: 80 MG LOADING DOSE
     Route: 058
     Dates: start: 20111012, end: 20111012
  2. DESENEX [Concomitant]
     Indication: PSORIASIS
     Dosage: DAILY
     Route: 061
  3. ZYRTEC [Concomitant]
     Indication: SEASONAL ALLERGY
  4. HUMIRA [Suspect]
     Route: 058
     Dates: start: 20111018
  5. MULTI-VITAMINS [Concomitant]
     Indication: VITAMIN SUPPLEMENTATION
  6. UNKNOWN MEDICATION [Concomitant]
     Indication: GLAUCOMA
     Route: 047

REACTIONS (1)
  - INJECTION SITE ERYTHEMA [None]
